FAERS Safety Report 16686279 (Version 2)
Quarter: 2019Q4

REPORT INFORMATION
  Report Type: Spontaneous
  Country: GB (occurrence: GB)
  Receive Date: 20190809
  Receipt Date: 20191010
  Transmission Date: 20200122
  Serious: Yes (Other)
  Sender: FDA-Public Use
  Company Number: GB-ROCHE-2374066

PATIENT
  Age: 72 Year
  Sex: Female

DRUGS (1)
  1. ACTILYSE [Suspect]
     Active Substance: ALTEPLASE
     Indication: THROMBOLYSIS
     Dosage: (1 IN 1 ONCE)
     Route: 042

REACTIONS (4)
  - Agitation [Recovered/Resolved]
  - Restlessness [Recovered/Resolved]
  - Thrombotic thrombocytopenic purpura [Unknown]
  - Confusional state [Recovered/Resolved]
